FAERS Safety Report 12312088 (Version 1)
Quarter: 2016Q2

REPORT INFORMATION
  Report Type: Spontaneous
  Country: US (occurrence: US)
  Receive Date: 20160427
  Receipt Date: 20160427
  Transmission Date: 20160815
  Serious: No
  Sender: FDA-Public Use
  Company Number: US-TEIKOKU PHARMA USA-TPU2016-00253

PATIENT
  Sex: Female
  Weight: 56.75 kg

DRUGS (11)
  1. LIDOCAINE PATCH [Suspect]
     Active Substance: LIDOCAINE
     Indication: PRODUCT USED FOR UNKNOWN INDICATION
     Route: 061
  2. BACLOFEN. [Concomitant]
     Active Substance: BACLOFEN
     Indication: MUSCLE RELAXANT THERAPY
     Dosage: 10MG, TWO TIMES A DAY, AS NEEDED, ORALLY
     Route: 048
     Dates: start: 2006
  3. IBUPROFEN. [Concomitant]
     Active Substance: IBUPROFEN
     Dosage: 800MG, ONE TABLET EVERY EIGHT HOURS AS NEEDED
     Route: 048
  4. LIDODERM [Suspect]
     Active Substance: LIDOCAINE
     Indication: FOOT DEFORMITY
  5. LIDODERM [Suspect]
     Active Substance: LIDOCAINE
     Indication: MORTON^S NEURALGIA
  6. LIDODERM [Suspect]
     Active Substance: LIDOCAINE
     Indication: NEUROPATHY PERIPHERAL
  7. LIDODERM [Suspect]
     Active Substance: LIDOCAINE
     Indication: PAIN IN EXTREMITY
     Route: 061
     Dates: start: 2004
  8. LIDODERM [Suspect]
     Active Substance: LIDOCAINE
     Indication: SCIATICA
  9. LIDODERM [Suspect]
     Active Substance: LIDOCAINE
     Indication: BLADDER PAIN
  10. BENTYL [Concomitant]
     Active Substance: DICYCLOMINE HYDROCHLORIDE
     Indication: MUSCLE RELAXANT THERAPY
     Dosage: 10MG, 1 TABLET, TWICE A DAY ORALLY AS NEEDED
     Route: 048
     Dates: start: 2010
  11. DETROL LA [Concomitant]
     Active Substance: TOLTERODINE TARTRATE
     Indication: MUSCLE SPASMS
     Route: 048
     Dates: start: 2011

REACTIONS (5)
  - Rash [None]
  - Bladder prolapse [Unknown]
  - Rectal prolapse [Unknown]
  - Sciatica [Unknown]
  - Pelvic pain [Unknown]

NARRATIVE: CASE EVENT DATE: 2006
